FAERS Safety Report 15632531 (Version 1)
Quarter: 2018Q4

REPORT INFORMATION
  Report Type: Spontaneous
  Country: CN (occurrence: CN)
  Receive Date: 20181119
  Receipt Date: 20181119
  Transmission Date: 20190205
  Serious: Yes (Death)
  Sender: FDA-Public Use
  Company Number: CN-BIOCRYST PHARMACEUTICALS, INC.-2018BCR00261

PATIENT
  Age: 28 Year
  Sex: Female

DRUGS (2)
  1. PERAMIVIR [Suspect]
     Active Substance: PERAMIVIR
     Indication: INFLUENZA
     Dosage: 300 MG, 2X/DAY
     Route: 065
     Dates: start: 20140403, end: 201404
  2. OSELTAMIVIR [Suspect]
     Active Substance: OSELTAMIVIR
     Indication: INFLUENZA
     Dosage: 150 MG, 2X/DAY
     Route: 065
     Dates: start: 20140403, end: 201404

REACTIONS (3)
  - Multiple organ dysfunction syndrome [Fatal]
  - Exposure during pregnancy [Not Recovered/Not Resolved]
  - Acute respiratory distress syndrome [Fatal]

NARRATIVE: CASE EVENT DATE: 201404
